FAERS Safety Report 4611167-4 (Version None)
Quarter: 2005Q1

REPORT INFORMATION
  Report Type: 
  Country: None (occurrence: None)
  Receive Date: 20050314
  Receipt Date: 20040816
  Transmission Date: 20050727
  Serious: Yes (Hospitalization)
  Sender: FDA-Public Use
  Company Number: USA040668937

PATIENT
  Age: 60 Year
  Sex: Female
  Weight: 98 kg

DRUGS (8)
  1. GEMZAR [Suspect]
     Indication: NEOPLASM RECURRENCE
     Dosage: 1000 MG/M2 WEEK
     Dates: start: 20030218, end: 20030902
  2. GEMZAR [Suspect]
     Indication: OVARIAN GERM CELL CANCER STAGE IV
     Dosage: 1000 MG/M2 WEEK
     Dates: start: 20030218, end: 20030902
  3. COREG [Concomitant]
  4. NORVASC [Concomitant]
  5. LASIX  /USA/(FUROSEMIDE) [Concomitant]
  6. PREDNISONE [Concomitant]
  7. LOVASTATIN [Concomitant]
  8. FOLIC ACID [Concomitant]

REACTIONS (1)
  - HAEMOLYTIC URAEMIC SYNDROME [None]
